FAERS Safety Report 19907144 (Version 1)
Quarter: 2021Q4

REPORT INFORMATION
  Report Type: Spontaneous
  Country: US (occurrence: US)
  Receive Date: 20211001
  Receipt Date: 20211001
  Transmission Date: 20220303
  Serious: Yes (Disabling)
  Sender: FDA-Public Use
  Company Number: None

PATIENT
  Age: 64 Year
  Sex: Male
  Weight: 83.25 kg

DRUGS (5)
  1. EUTHYROX [Suspect]
     Active Substance: LEVOTHYROXINE SODIUM
     Indication: Hypothyroidism
     Dosage: ?          QUANTITY:1 TABLET(S);
     Route: 048
     Dates: start: 20210501, end: 20211001
  2. LEVOTHYROXINE [Concomitant]
     Active Substance: LEVOTHYROXINE
  3. LOSARTAN [Concomitant]
     Active Substance: LOSARTAN
  4. ATORVASTATIN [Concomitant]
     Active Substance: ATORVASTATIN
  5. CLARINEX [Concomitant]
     Active Substance: DESLORATADINE

REACTIONS (2)
  - Blood thyroid stimulating hormone increased [None]
  - Product substitution issue [None]

NARRATIVE: CASE EVENT DATE: 20210920
